FAERS Safety Report 9186024 (Version 1)
Quarter: 2013Q1

REPORT INFORMATION
  Report Type: Spontaneous
  Country: US (occurrence: US)
  Receive Date: 20130325
  Receipt Date: 20130325
  Transmission Date: 20140127
  Serious: No
  Sender: FDA-Public Use
  Company Number: US-UPSHER-SMITH LABORATORIES, INC.-12001719

PATIENT
  Age: 62 Year
  Sex: Male

DRUGS (2)
  1. PROPRANOLOL HCL [Suspect]
     Indication: HYPERTENSION
     Dosage: 80 MG, QD
     Route: 048
     Dates: start: 20120727
  2. LIPITOR [Concomitant]
     Dosage: 10 MG, QD
     Route: 048
     Dates: start: 2002

REACTIONS (2)
  - Paraesthesia [Not Recovered/Not Resolved]
  - Pruritus [Not Recovered/Not Resolved]
